FAERS Safety Report 7850681-5 (Version None)
Quarter: 2011Q4

REPORT INFORMATION
  Report Type: 
  Country: None (occurrence: None)
  Receive Date: 20111024
  Receipt Date: 20111013
  Transmission Date: 20120403
  Serious: Yes (Other)
  Sender: FDA-Public Use
  Company Number: ACO_27280_2011

PATIENT
  Age: 44 Year
  Sex: Male

DRUGS (2)
  1. AVONEX [Concomitant]
  2. AMPYRA [Suspect]
     Indication: GAIT DISTURBANCE
     Dosage: 10MG, BID
     Dates: start: 20110901, end: 20111001

REACTIONS (2)
  - THROAT TIGHTNESS [None]
  - HEADACHE [None]
